FAERS Safety Report 13028582 (Version 2)
Quarter: 2017Q1

REPORT INFORMATION
  Report Type: Spontaneous
  Country: US (occurrence: US)
  Receive Date: 20161214
  Receipt Date: 20170313
  Transmission Date: 20170428
  Serious: Yes (Hospitalization, Other)
  Sender: FDA-Public Use
  Company Number: US-SMITH AND NEPHEW, INC-2016SMT01066

PATIENT
  Age: 80 Year
  Sex: Male
  Weight: 89.8 kg

DRUGS (1)
  1. REGRANEX [Suspect]
     Active Substance: BECAPLERMIN
     Indication: WOUND
     Dosage: UNK UNK, 1X/DAY
     Route: 061
     Dates: start: 201611, end: 20161104

REACTIONS (7)
  - Arthritis bacterial [Recovered/Resolved]
  - Blood glucose increased [Recovering/Resolving]
  - Anxiety [Unknown]
  - Abscess [Recovered/Resolved]
  - Wound [Recovering/Resolving]
  - Depression [Unknown]
  - Cellulitis [Recovered/Resolved]

NARRATIVE: CASE EVENT DATE: 201611
